FAERS Safety Report 5028019-0 (Version None)
Quarter: 2006Q2

REPORT INFORMATION
  Report Type: 
  Country: None (occurrence: None)
  Receive Date: 20060609
  Receipt Date: 20060531
  Transmission Date: 20061013
  Serious: Yes (Other)
  Sender: FDA-Public Use
  Company Number: 2006070893

PATIENT
  Age: 47 Year
  Sex: Female

DRUGS (2)
  1. DILANTIN [Suspect]
     Indication: ILL-DEFINED DISORDER
     Dosage: 290 MG (1 IN 1 D), ORAL
     Route: 048
  2. DEPAKOTE - SLOW RELEASE (VALPROATE SEMISODIUM) [Concomitant]

REACTIONS (2)
  - CIRCUMSTANCE OR INFORMATION CAPABLE OF LEADING TO MEDICATION ERROR [None]
  - CONVULSION [None]
